FAERS Safety Report 10989804 (Version 3)
Quarter: 2015Q3

REPORT INFORMATION
  Report Type: Spontaneous
  Country: US (occurrence: US)
  Receive Date: 20150406
  Receipt Date: 20150827
  Transmission Date: 20151125
  Serious: Yes (Death, Other)
  Sender: FDA-Public Use
  Company Number: US-BRISTOL-MYERS SQUIBB COMPANY-BMS-2015-019775

PATIENT
  Sex: Female

DRUGS (1)
  1. YERVOY [Suspect]
     Active Substance: IPILIMUMAB
     Indication: NEOPLASM
     Route: 065

REACTIONS (5)
  - Abdominal pain [Recovering/Resolving]
  - Diarrhoea haemorrhagic [Recovering/Resolving]
  - Anaemia [Recovering/Resolving]
  - Death [Fatal]
  - Pyrexia [Recovering/Resolving]

NARRATIVE: CASE EVENT DATE: 20150410
